FAERS Safety Report 7027406-9 (Version None)
Quarter: 2010Q4

REPORT INFORMATION
  Report Type: 
  Country: None (occurrence: None)
  Receive Date: 20101004
  Receipt Date: 20100925
  Transmission Date: 20110411
  Serious: Yes (Other)
  Sender: FDA-Public Use
  Company Number: US-ABBOTT-10P-163-0673526-00

PATIENT
  Age: 29 Year
  Sex: Female

DRUGS (8)
  1. RITONAVIR [Suspect]
     Indication: HIV INFECTION
     Route: 048
     Dates: start: 20051014
  2. RALTEGRAVIR [Concomitant]
     Indication: HIV INFECTION
     Route: 048
     Dates: start: 20091012, end: 20091027
  3. RALTEGRAVIR [Concomitant]
     Route: 048
     Dates: start: 20091029, end: 20091029
  4. RALTEGRAVIR [Concomitant]
     Route: 048
     Dates: start: 20091031, end: 20091031
  5. RALTEGRAVIR [Concomitant]
     Route: 048
     Dates: start: 20091102, end: 20091102
  6. RALTEGRAVIR [Concomitant]
     Route: 048
     Dates: start: 20091106, end: 20091125
  7. ATAZANAVIR SULFATE [Concomitant]
     Indication: HIV INFECTION
     Route: 048
     Dates: start: 20051014
  8. TRUVADA [Concomitant]
     Indication: HIV INFECTION
     Route: 048
     Dates: start: 20060905

REACTIONS (2)
  - ABORTION INDUCED [None]
  - VOMITING [None]
